FAERS Safety Report 8370338-4 (Version None)
Quarter: 2012Q2

REPORT INFORMATION
  Report Type: 
  Country: None (occurrence: None)
  Receive Date: 20120518
  Receipt Date: 20110517
  Transmission Date: 20120825
  Serious: Yes (Hospitalization)
  Sender: FDA-Public Use
  Company Number: US-ASTRAZENECA-2011SE27852

PATIENT
  Sex: Male

DRUGS (8)
  1. SOLVENT [Concomitant]
     Dosage: 2 TIMES A DAY
     Route: 055
  2. PRAVASTATIN [Concomitant]
  3. PRILOSEC OTC [Suspect]
     Route: 048
     Dates: start: 20101027, end: 20110331
  4. ALBUTEROL SULFATE AUTOHALER [Concomitant]
     Dosage: 2 PUFFS EVERY 4 HOURS AS NEEDED
     Route: 055
  5. CALCIUM CARBONATE [Concomitant]
  6. MYLANTA [Concomitant]
  7. AVALIDE [Concomitant]
     Dosage: 300/12.5
  8. ASPIRIN [Concomitant]

REACTIONS (1)
  - TUBULOINTERSTITIAL NEPHRITIS [None]
